FAERS Safety Report 7132045-5 (Version None)
Quarter: 2010Q4

REPORT INFORMATION
  Report Type: 
  Country: None (occurrence: None)
  Receive Date: 20101202
  Receipt Date: 20081001
  Transmission Date: 20110411
  Serious: Yes (Other)
  Sender: FDA-Public Use
  Company Number: FR-CELGENEUS-056-21880-08100232

PATIENT
  Age: 61 Year
  Sex: Female

DRUGS (6)
  1. REVLIMID [Suspect]
     Route: 048
  2. DINE [Suspect]
     Route: 065
  3. VFEND [Concomitant]
  4. EFFEXOR [Concomitant]
     Route: 065
  5. VALACYCLOVIR HYDROCHLORIDE [Concomitant]
     Route: 065
  6. SPECIAFOLDINE [Concomitant]
     Route: 065

REACTIONS (2)
  - ESCHERICHIA INFECTION [None]
  - PYELONEPHRITIS [None]
